FAERS Safety Report 8582989-2 (Version None)
Quarter: 2012Q3

REPORT INFORMATION
  Report Type: 
  Country: None (occurrence: None)
  Receive Date: 20120809
  Receipt Date: 20120806
  Transmission Date: 20120928
  Serious: Yes (Other)
  Sender: FDA-Public Use
  Company Number: US-PFIZER INC-2012192142

PATIENT
  Age: 39 Year
  Sex: Female
  Weight: 61.224 kg

DRUGS (6)
  1. SAVELLA [Concomitant]
     Indication: FIBROMYALGIA
     Dosage: 12.5 MG,DAILY
  2. LYRICA [Suspect]
     Indication: FATIGUE
  3. SAVELLA [Concomitant]
     Indication: SLEEP DISORDER
     Dosage: 25 MG, DAILY
  4. LYRICA [Suspect]
     Indication: MYOFASCIAL PAIN SYNDROME
  5. LYRICA [Suspect]
     Indication: FIBROMYALGIA
     Dosage: 225MG IN MORNING AND 300MG AT NIGHT
     Dates: start: 20090101
  6. LYRICA [Suspect]
     Indication: NERVE INJURY

REACTIONS (5)
  - EYE PAIN [None]
  - BACK PAIN [None]
  - SPINAL PAIN [None]
  - PAIN [None]
  - HEADACHE [None]
